FAERS Safety Report 18283759 (Version 4)
Quarter: 2020Q4

REPORT INFORMATION
  Report Type: Report from Study
  Country: US (occurrence: US)
  Receive Date: 20200918
  Receipt Date: 20201112
  Transmission Date: 20210113
  Serious: Yes (Hospitalization, Other)
  Sender: FDA-Public Use
  Company Number: US-JNJFOC-A-NJ2019-194617

PATIENT
  Age: 85 Year
  Sex: Female
  Weight: 82.17 kg

DRUGS (9)
  1. ADEMPAS [Concomitant]
     Active Substance: RIOCIGUAT
  2. SILDENAFIL CITRATE. [Concomitant]
     Active Substance: SILDENAFIL CITRATE
  3. DILTIAZEM. [Concomitant]
     Active Substance: DILTIAZEM
  4. UPTRAVI [Suspect]
     Active Substance: SELEXIPAG
     Indication: PULMONARY ARTERIAL HYPERTENSION
     Dosage: 400 MCG, BID
     Route: 048
  5. UPTRAVI [Suspect]
     Active Substance: SELEXIPAG
     Dosage: 200 MCG,IN AM, 400 MCG IN PM
     Route: 048
  6. ELIQUIS [Concomitant]
     Active Substance: APIXABAN
  7. HYDROCODONE [Concomitant]
     Active Substance: HYDROCODONE
     Indication: ARTHRITIS
  8. UPTRAVI [Suspect]
     Active Substance: SELEXIPAG
     Dosage: 200 MCG, BID
     Route: 048
  9. UPTRAVI [Suspect]
     Active Substance: SELEXIPAG
     Route: 048

REACTIONS (25)
  - Pericardial haemorrhage [Unknown]
  - Dyspnoea [Unknown]
  - Tremor [Unknown]
  - Concomitant disease aggravated [Unknown]
  - Dizziness [Unknown]
  - Wrist fracture [Unknown]
  - Face injury [Unknown]
  - Blood potassium decreased [Unknown]
  - Pelvic haemorrhage [Unknown]
  - Pulmonary hypertension [Unknown]
  - Fall [Unknown]
  - Hypotension [Unknown]
  - Neck pain [Unknown]
  - Retching [Unknown]
  - Heart rate decreased [Unknown]
  - Gait disturbance [Unknown]
  - Dysgeusia [Unknown]
  - Back pain [Unknown]
  - Urine output decreased [Unknown]
  - Spontaneous haemorrhage [Unknown]
  - Decreased appetite [Unknown]
  - Contusion [Unknown]
  - Feeling abnormal [Unknown]
  - Balance disorder [Unknown]
  - Bedridden [Not Recovered/Not Resolved]

NARRATIVE: CASE EVENT DATE: 202007
